FAERS Safety Report 25041914 (Version 1)
Quarter: 2025Q1

REPORT INFORMATION
  Report Type: Spontaneous
  Country: CN (occurrence: CN)
  Receive Date: 20250305
  Receipt Date: 20250305
  Transmission Date: 20250408
  Serious: Yes (Life-Threatening)
  Sender: FRESENIUS KABI
  Company Number: CN-FreseniusKabi-FK202503416

PATIENT
  Age: 75 Year
  Sex: Female
  Weight: 70.2 kg

DRUGS (2)
  1. PROPOFOL [Suspect]
     Active Substance: PROPOFOL
     Indication: Induction of anaesthesia
     Dosage: FOA: INJECTION?ROA: INTRAVENOUS INJECTION
     Dates: start: 20250226, end: 20250226
  2. REMIMAZOLAM BESYLATE [Suspect]
     Active Substance: REMIMAZOLAM BESYLATE
     Indication: Induction of anaesthesia
     Dosage: FOA: INJECTION?ROA: INTRAVENOUS INJECTION
     Dates: start: 20250226, end: 20250226

REACTIONS (1)
  - Anaphylactic shock [Recovering/Resolving]

NARRATIVE: CASE EVENT DATE: 20250226
